FAERS Safety Report 10164623 (Version 1)
Quarter: 2014Q2

REPORT INFORMATION
  Report Type: Spontaneous
  Country: US (occurrence: US)
  Receive Date: 20140510
  Receipt Date: 20140510
  Transmission Date: 20141212
  Serious: No
  Sender: FDA-Public Use
  Company Number: US-BRISTOL-MYERS SQUIBB COMPANY-20124236

PATIENT
  Age: 71 Year
  Sex: Female
  Weight: 81.63 kg

DRUGS (1)
  1. BYDUREON [Suspect]
     Indication: TYPE 2 DIABETES MELLITUS
     Route: 058

REACTIONS (4)
  - Injection site nodule [Not Recovered/Not Resolved]
  - Injection site pruritus [Unknown]
  - Blood glucose increased [Recovering/Resolving]
  - Gastrooesophageal reflux disease [Unknown]
